FAERS Safety Report 6578340-X (Version None)
Quarter: 2010Q1

REPORT INFORMATION
  Report Type: 
  Country: None (occurrence: None)
  Receive Date: 20100211
  Receipt Date: 20100201
  Transmission Date: 20100710
  Serious: Yes (Other)
  Sender: FDA-Public Use
  Company Number: NL-ROCHE-683225

PATIENT
  Sex: Female

DRUGS (3)
  1. XELODA [Suspect]
     Dosage: CAPECITABINE STARTED ON AN UNKNOWN DATE AFTER 2002
     Route: 048
  2. CHEMOTHERAPY NOS [Suspect]
     Route: 065
  3. TAMOXIFEN CITRATE [Concomitant]
     Dates: start: 20020101

REACTIONS (7)
  - CARDIOMYOPATHY [None]
  - CONJUNCTIVITIS [None]
  - DRY EYE [None]
  - FATIGUE [None]
  - METASTASES TO EYE [None]
  - NEUROPATHY PERIPHERAL [None]
  - OPTIC NEURITIS [None]
